FAERS Safety Report 18418284 (Version 1)
Quarter: 2020Q4

REPORT INFORMATION
  Report Type: Spontaneous
  Country: CA (occurrence: CA)
  Receive Date: 20201023
  Receipt Date: 20201023
  Transmission Date: 20210114
  Serious: Yes (Death, Other)
  Sender: FDA-Public Use
  Company Number: CA-REGENERON PHARMACEUTICALS, INC.-2020-83319

PATIENT

DRUGS (1)
  1. EYLEA [Suspect]
     Active Substance: AFLIBERCEPT
     Indication: NEOVASCULAR AGE-RELATED MACULAR DEGENERATION
     Dosage: TOTAL EYLEA DOSE WAS UNKNOWN, LAST DOSE WAS RECEVIED ON 24-JUL-2020
     Dates: end: 20200724

REACTIONS (1)
  - Intestinal obstruction [Fatal]
